FAERS Safety Report 15540431 (Version 7)
Quarter: 2019Q4

REPORT INFORMATION
  Report Type: Spontaneous
  Country: US (occurrence: US)
  Receive Date: 20181023
  Receipt Date: 20191107
  Transmission Date: 20200122
  Serious: No
  Sender: FDA-Public Use
  Company Number: US-PFIZER INC-2018424194

PATIENT
  Age: 78 Year
  Sex: Female

DRUGS (1)
  1. IBRANCE [Suspect]
     Active Substance: PALBOCICLIB
     Indication: BREAST CANCER FEMALE
     Dosage: 75 MG, CYCLIC (FOR 21 DAYS OF A 28 DAY CYCLE); [OF 21 DAYS ON AND 7 DAYS OFF]
     Route: 048
     Dates: start: 201810

REACTIONS (5)
  - Auditory disorder [Unknown]
  - Movement disorder [Unknown]
  - White blood cell count decreased [Unknown]
  - Ear disorder [Unknown]
  - Tumour marker increased [Unknown]

NARRATIVE: CASE EVENT DATE: 2018
